FAERS Safety Report 23779337 (Version 1)
Quarter: 2024Q2

REPORT INFORMATION
  Report Type: Report from Study
  Country: GB (occurrence: GB)
  Receive Date: 20240424
  Receipt Date: 20240424
  Transmission Date: 20240716
  Serious: Yes (Hospitalization)
  Sender: FDA-Public Use
  Company Number: GB-AKCEA THERAPEUTICS, INC.-2024IS003616

PATIENT

DRUGS (1)
  1. TEGSEDI [Suspect]
     Active Substance: INOTERSEN SODIUM
     Indication: Hereditary neuropathic amyloidosis
     Dosage: 284 MILLIGRAM, QW
     Route: 058
     Dates: start: 202004

REACTIONS (10)
  - Loss of consciousness [Unknown]
  - Syncope [Unknown]
  - Amnesia [Unknown]
  - Respiratory arrest [Unknown]
  - Pulse absent [Unknown]
  - Mouth haemorrhage [Unknown]
  - Wound haemorrhage [Unknown]
  - Wound [Unknown]
  - Asthenia [Unknown]
  - Malaise [Unknown]

NARRATIVE: CASE EVENT DATE: 20211227
